FAERS Safety Report 15574962 (Version 2)
Quarter: 2018Q4

REPORT INFORMATION
  Report Type: Spontaneous
  Country: US (occurrence: US)
  Receive Date: 20181101
  Receipt Date: 20181128
  Transmission Date: 20190205
  Serious: No
  Sender: FDA-Public Use
  Company Number: US-TAKEDA-2018TUS031458

PATIENT
  Age: 34 Year
  Sex: Female

DRUGS (2)
  1. TRINTELLIX [Suspect]
     Active Substance: VORTIOXETINE HYDROBROMIDE
     Indication: ANXIETY
     Dosage: 10 MG, QD
     Route: 048
     Dates: start: 2018
  2. TRINTELLIX [Suspect]
     Active Substance: VORTIOXETINE HYDROBROMIDE
     Indication: DEPRESSION
     Dosage: 20 MG, QD
     Route: 048
     Dates: start: 20180907, end: 20181109

REACTIONS (1)
  - Salivary hypersecretion [Unknown]

NARRATIVE: CASE EVENT DATE: 2018
